FAERS Safety Report 15075637 (Version 2)
Quarter: 2018Q4

REPORT INFORMATION
  Report Type: Spontaneous
  Country: US (occurrence: US)
  Receive Date: 20180627
  Receipt Date: 20181205
  Transmission Date: 20190204
  Serious: No
  Sender: FDA-Public Use
  Company Number: US-SA-2018SA167270

PATIENT
  Sex: Male

DRUGS (17)
  1. TIAZAC [DILTIAZEM HYDROCHLORIDE] [Concomitant]
  2. ZANTAC [Concomitant]
     Active Substance: RANITIDINE HYDROCHLORIDE
  3. AUBAGIO [Suspect]
     Active Substance: TERIFLUNOMIDE
     Indication: MULTIPLE SCLEROSIS
     Dosage: 14 MG, QD
     Route: 048
     Dates: start: 20180504, end: 201807
  4. IBUPROFEN. [Concomitant]
     Active Substance: IBUPROFEN
  5. LYRICA [Concomitant]
     Active Substance: PREGABALIN
  6. DOXEPIN [Concomitant]
     Active Substance: DOXEPIN
  7. BUSPIRONE [Concomitant]
     Active Substance: BUSPIRONE HYDROCHLORIDE
  8. ADVIL [IBUPROFEN] [Concomitant]
     Active Substance: IBUPROFEN
  9. CELEBREX [Concomitant]
     Active Substance: CELECOXIB
  10. MODAFINIL. [Concomitant]
     Active Substance: MODAFINIL
  11. NAPROXEN. [Concomitant]
     Active Substance: NAPROXEN
  12. LORATADINE. [Concomitant]
     Active Substance: LORATADINE
  13. VITAMIN D3 [Concomitant]
     Active Substance: CHOLECALCIFEROL
  14. AMPYRA [Concomitant]
     Active Substance: DALFAMPRIDINE
  15. TERAZOSIN [Concomitant]
     Active Substance: TERAZOSIN\TERAZOSIN HYDROCHLORIDE
  16. BACLOFEN. [Concomitant]
     Active Substance: BACLOFEN
  17. CELEXA [CELECOXIB] [Concomitant]
     Active Substance: CELECOXIB

REACTIONS (5)
  - Depression [Unknown]
  - Peripheral swelling [Unknown]
  - Drug hypersensitivity [Unknown]
  - Skin lesion [Unknown]
  - Blister [Unknown]

NARRATIVE: CASE EVENT DATE: 201807
